FAERS Safety Report 11862105 (Version 1)
Quarter: 2015Q4

REPORT INFORMATION
  Report Type: Spontaneous
  Country: US (occurrence: None)
  Receive Date: 20151222
  Receipt Date: 20151222
  Transmission Date: 20160305
  Serious: Yes (Life-Threatening, Hospitalization)
  Sender: FDA-Public Use
  Company Number: None

PATIENT
  Age: 29 Year
  Sex: Male

DRUGS (1)
  1. NSULIN NOS [Suspect]
     Active Substance: INSULIN NOS

REACTIONS (5)
  - Seizure [None]
  - Skull fracture [None]
  - Blood glucose decreased [None]
  - Subdural haematoma [None]
  - Multiple injuries [None]

NARRATIVE: CASE EVENT DATE: 20151203
